FAERS Safety Report 4504905-2 (Version None)
Quarter: 2004Q4

REPORT INFORMATION
  Report Type: 
  Country: None (occurrence: None)
  Receive Date: 20040928
  Receipt Date: 20040809
  Transmission Date: 20050328
  Serious: No
  Sender: FDA-Public Use
  Company Number: 04P-163-0269162-00

PATIENT
  Age: 56 Year
  Sex: Female
  Weight: 97.5234 kg

DRUGS (6)
  1. HUMIRA [Suspect]
     Indication: RHEUMATOID ARTHRITIS
     Dosage: 40 MG, 1 IN 2 WK, SUBCUTANEOUS
     Route: 058
     Dates: start: 20040804
  2. METHOTREXATE SODIUM [Concomitant]
  3. MELOXICAM [Concomitant]
  4. AMLODIPINE BESYLATE [Concomitant]
  5. AMITRIPTYLINE [Concomitant]
  6. VICODIN [Concomitant]

REACTIONS (2)
  - INJECTION SITE STINGING [None]
  - UNDERDOSE [None]
